FAERS Safety Report 24627717 (Version 2)
Quarter: 2025Q3

REPORT INFORMATION
  Report Type: Spontaneous
  Country: EU (occurrence: EU)
  Receive Date: 20241116
  Receipt Date: 20250809
  Transmission Date: 20251021
  Serious: Yes (Other)
  Sender: ALEXION PHARMACEUTICALS
  Company Number: EU-ASTRAZENECA-202411GLO009435NL

PATIENT
  Age: 47 Year
  Sex: Female
  Weight: 90 kg

DRUGS (1)
  1. QUETIAPINE FUMARATE [Suspect]
     Active Substance: QUETIAPINE FUMARATE
     Indication: Insomnia
     Dosage: 12.5 MILLIGRAM, QD
     Dates: start: 20240922

REACTIONS (4)
  - Drug dependence [Not Recovered/Not Resolved]
  - Weight increased [Not Recovered/Not Resolved]
  - Libido decreased [Not Recovered/Not Resolved]
  - Product use in unapproved indication [Not Recovered/Not Resolved]
